FAERS Safety Report 17895468 (Version 3)
Quarter: 2020Q3

REPORT INFORMATION
  Report Type: Spontaneous
  Country: US (occurrence: US)
  Receive Date: 20200615
  Receipt Date: 20200728
  Transmission Date: 20201103
  Serious: Yes (Other)
  Sender: FDA-Public Use
  Company Number: US-PFIZER INC-2020231260

PATIENT
  Age: 64 Year
  Sex: Female

DRUGS (1)
  1. XELJANZ XR [Suspect]
     Active Substance: TOFACITINIB CITRATE
     Dosage: 11 MG, UNK

REACTIONS (7)
  - Somnolence [Unknown]
  - Blood pressure increased [Unknown]
  - Pain [Unknown]
  - Swelling [Unknown]
  - Mental impairment [Unknown]
  - Cardiac failure congestive [Unknown]
  - Peripheral swelling [Unknown]
